FAERS Safety Report 6233014-X (Version None)
Quarter: 2009Q2

REPORT INFORMATION
  Report Type: 
  Country: None (occurrence: None)
  Receive Date: 20090617
  Receipt Date: 20090609
  Transmission Date: 20091009
  Serious: Yes (Hospitalization, Other)
  Sender: FDA-Public Use
  Company Number: A0791445A

PATIENT
  Age: 17 Year
  Sex: Male
  Weight: 62.1 kg

DRUGS (3)
  1. NABUMETONE [Suspect]
     Route: 048
  2. METHOTREXATE [Suspect]
     Dosage: 20MG WEEKLY
     Route: 048
  3. FOLIC ACID [Suspect]
     Indication: DRUG USE FOR UNKNOWN INDICATION
     Dosage: 1G PER DAY

REACTIONS (4)
  - BLISTER [None]
  - HERPES SIMPLEX [None]
  - HYPOAESTHESIA ORAL [None]
  - LIP SWELLING [None]
